FAERS Safety Report 12329711 (Version 1)
Quarter: 2016Q2

REPORT INFORMATION
  Report Type: Spontaneous
  Country: DK (occurrence: DK)
  Receive Date: 20160503
  Receipt Date: 20160503
  Transmission Date: 20160815
  Serious: Yes (Hospitalization, Other)
  Sender: FDA-Public Use
  Company Number: DK-GILEAD-2016-0210790

PATIENT
  Age: 70 Year
  Sex: Male

DRUGS (9)
  1. SULFAMETHOXAZOL, TRIMETHOPRIM [Concomitant]
     Indication: INFECTION PROPHYLAXIS
  2. CYKLONOVA [Concomitant]
     Active Substance: TRANEXAMIC ACID
     Indication: HAEMORRHAGE PROPHYLAXIS
  3. NIVESTIM [Concomitant]
     Active Substance: FILGRASTIM
     Indication: NEUTROPENIA
  4. ZOVIR [Concomitant]
     Active Substance: ACYCLOVIR
     Indication: HERPES ZOSTER
  5. ZYDELIG [Suspect]
     Active Substance: IDELALISIB
     Indication: LEUKAEMIA
     Dosage: 150 MG, BID
     Route: 048
     Dates: start: 20160208
  6. ALLOPURINOL. [Concomitant]
     Active Substance: ALLOPURINOL
     Indication: GOUTY ARTHRITIS
  7. CETIRIZIN ACTAVIS [Concomitant]
     Active Substance: CETIRIZINE HYDROCHLORIDE
     Indication: HYPERSENSITIVITY
  8. ZOPICLONE ACTAVIS [Concomitant]
     Active Substance: ZOPICLONE
     Indication: INSOMNIA
  9. PINEX [Concomitant]
     Active Substance: ACETAMINOPHEN
     Indication: PAIN

REACTIONS (4)
  - Acute coronary syndrome [Not Recovered/Not Resolved]
  - Cardiac failure chronic [Unknown]
  - Angina pectoris [Unknown]
  - Coronary artery stenosis [Unknown]

NARRATIVE: CASE EVENT DATE: 201602
